FAERS Safety Report 25705861 (Version 1)
Quarter: 2025Q3

REPORT INFORMATION
  Report Type: Spontaneous
  Country: CN (occurrence: CN)
  Receive Date: 20250820
  Receipt Date: 20250820
  Transmission Date: 20251021
  Serious: Yes (Hospitalization)
  Sender: ROCHE
  Company Number: CN-ROCHE-10000364333

PATIENT
  Age: 72 Year
  Sex: Female

DRUGS (6)
  1. PERTUZUMAB\TRASTUZUMAB [Suspect]
     Active Substance: PERTUZUMAB\TRASTUZUMAB
     Indication: Breast cancer
     Dosage: 1 VIAL 1200/600 MG
     Route: 042
     Dates: start: 20250512, end: 20250512
  2. CARBOPLATIN [Suspect]
     Active Substance: CARBOPLATIN
     Indication: Breast cancer
     Route: 042
     Dates: start: 20250512, end: 20250512
  3. DOCETAXEL [Suspect]
     Active Substance: DOCETAXEL
     Indication: Breast cancer
     Route: 042
     Dates: start: 20250512, end: 20250512
  4. 0.9% Sodium Chloride Injection 100ml [Concomitant]
     Route: 042
     Dates: start: 20250512, end: 20250512
  5. 0.9% Sodium Chloride Injection 100ml [Concomitant]
     Route: 042
     Dates: start: 20250512, end: 20250512
  6. DEXTROSE [Concomitant]
     Active Substance: DEXTROSE MONOHYDRATE
     Route: 042
     Dates: start: 20250512, end: 20250512

REACTIONS (1)
  - Myelosuppression [Recovering/Resolving]

NARRATIVE: CASE EVENT DATE: 20250519
